FAERS Safety Report 18473753 (Version 1)
Quarter: 2020Q4

REPORT INFORMATION
  Report Type: Spontaneous
  Country: US (occurrence: US)
  Receive Date: 20201106
  Receipt Date: 20201106
  Transmission Date: 20210114
  Serious: Yes (Other)
  Sender: FDA-Public Use
  Company Number: None

PATIENT
  Age: 51 Year
  Sex: Female
  Weight: 40.05 kg

DRUGS (1)
  1. THERMACARE HEATWRAPS [Suspect]
     Active Substance: ACTIVATED CHARCOAL\IRON\SODIUM
     Indication: BACK PAIN

REACTIONS (3)
  - Thermal burn [None]
  - Blister [None]
  - Pain [None]

NARRATIVE: CASE EVENT DATE: 20201104
